FAERS Safety Report 8395144-6 (Version None)
Quarter: 2012Q2

REPORT INFORMATION
  Report Type: 
  Country: None (occurrence: None)
  Receive Date: 20120530
  Receipt Date: 20120518
  Transmission Date: 20120825
  Serious: Yes (Disabling)
  Sender: FDA-Public Use
  Company Number: US-CELGENEUS-163-21660-12021848

PATIENT
  Sex: Male

DRUGS (2)
  1. ABRAXANE [Suspect]
     Dosage: 527
     Route: 041
     Dates: end: 20120103
  2. ABRAXANE [Suspect]
     Indication: BREAST CANCER
     Route: 041
     Dates: start: 20111101, end: 20120103

REACTIONS (2)
  - ATAXIA [None]
  - NEUROPATHY PERIPHERAL [None]
